FAERS Safety Report 15316711 (Version 1)
Quarter: 2018Q3

REPORT INFORMATION
  Report Type: Spontaneous
  Country: US (occurrence: US)
  Receive Date: 20180824
  Receipt Date: 20180824
  Transmission Date: 20181010
  Serious: No
  Sender: FDA-Public Use
  Company Number: US-GLAXOSMITHKLINE-US2018151057

PATIENT
  Age: 70 Year
  Sex: Female

DRUGS (1)
  1. INCRUSE ELLIPTA [Suspect]
     Active Substance: UMECLIDINIUM BROMIDE
     Indication: CHRONIC OBSTRUCTIVE PULMONARY DISEASE
     Dosage: 1 PUFF(S), 1D
     Route: 055
     Dates: start: 2018

REACTIONS (10)
  - Echocardiogram [Unknown]
  - Decreased appetite [Unknown]
  - Abdominal discomfort [Unknown]
  - Lymphadenopathy [Unknown]
  - Ill-defined disorder [Unknown]
  - Dry skin [Unknown]
  - Retching [Unknown]
  - Cardiac disorder [Unknown]
  - Alopecia [Unknown]
  - Vasodilatation [Unknown]

NARRATIVE: CASE EVENT DATE: 201806
